FAERS Safety Report 5679442-2 (Version None)
Quarter: 2008Q1

REPORT INFORMATION
  Report Type: 
  Country: None (occurrence: None)
  Receive Date: 20080325
  Receipt Date: 20080115
  Transmission Date: 20080703
  Serious: Yes (Other)
  Sender: FDA-Public Use
  Company Number: US-PFIZER INC-2007108228

PATIENT
  Sex: Male
  Weight: 103.18 kg

DRUGS (7)
  1. CHANTIX [Suspect]
     Indication: SMOKING CESSATION THERAPY
     Route: 048
  2. ANTIHYPERTENSIVES [Concomitant]
  3. AMBIEN [Concomitant]
  4. LORTAB [Concomitant]
  5. XANAX [Concomitant]
  6. ALL OTHER THERAPEUTIC PRODUCTS [Concomitant]
  7. METOPROLOL TARTRATE [Concomitant]

REACTIONS (6)
  - BLOOD PRESSURE INCREASED [None]
  - HEPATIC ENZYME ABNORMAL [None]
  - LIVER DISORDER [None]
  - LOSS OF CONSCIOUSNESS [None]
  - PNEUMONIA [None]
  - URINE ABNORMALITY [None]
